FAERS Safety Report 11203683 (Version 1)
Quarter: 2015Q2

REPORT INFORMATION
  Report Type: Spontaneous
  Country: BR (occurrence: BR)
  Receive Date: 20150619
  Receipt Date: 20150619
  Transmission Date: 20150821
  Serious: Yes (Other)
  Sender: FDA-Public Use
  Company Number: BR-PFIZER INC-2015201187

PATIENT
  Age: 63 Year
  Sex: Male
  Weight: 85 kg

DRUGS (8)
  1. CLOPIN [Concomitant]
     Active Substance: CLOPIDOGREL BISULFATE
     Dosage: 1 TABLET, DAILY
     Dates: start: 201409
  2. APRAZ [Concomitant]
     Indication: SLEEP DISORDER
     Dosage: 1 TABLET, DAILY
     Dates: start: 2010
  3. AMLODIPINE [Concomitant]
     Active Substance: AMLODIPINE BESYLATE
     Dosage: 1 TABLET, DAILY
     Dates: start: 201409
  4. LIPITOR [Suspect]
     Active Substance: ATORVASTATIN CALCIUM
     Dosage: UNK
     Route: 048
     Dates: start: 201409, end: 201504
  5. BENICAR [Concomitant]
     Active Substance: OLMESARTAN MEDOXOMIL
     Indication: HYPERTENSION
     Dosage: 1 TABLET OF 40 MG, DAILY
     Dates: start: 2009
  6. METFORMIN [Concomitant]
     Active Substance: METFORMIN HYDROCHLORIDE
     Indication: BLOOD GLUCOSE
     Dosage: 1 TABLET, DAILY
     Dates: start: 2009
  7. TRADJENTA [Concomitant]
     Active Substance: LINAGLIPTIN
     Indication: DIABETES MELLITUS
     Dosage: 1 TABLET, DAILY
     Dates: start: 201501
  8. SOMALGIN [Concomitant]
     Active Substance: ASPIRIN\DIHYDROXYALUMINUM AMINOACETATE ANHYDROUS\MAGNESIUM CARBONATE
     Indication: ANTICOAGULANT THERAPY
     Dosage: 1 TABLET, DAILY
     Dates: start: 201409

REACTIONS (2)
  - Labyrinthitis [Unknown]
  - Infarction [Unknown]

NARRATIVE: CASE EVENT DATE: 201409
